FAERS Safety Report 5932667-0 (Version None)
Quarter: 2008Q4

REPORT INFORMATION
  Report Type: 
  Country: None (occurrence: None)
  Receive Date: 20081023
  Receipt Date: 20060626
  Transmission Date: 20090506
  Serious: Yes (Death)
  Sender: FDA-Public Use
  Company Number: 2006AL002139

PATIENT
  Age: 62 Year
  Sex: Male

DRUGS (2)
  1. CITALOPRAM HYDROBROMIDE [Suspect]
     Indication: DEPRESSED MOOD
     Dosage: 20 MG;BID;PO
     Route: 048
     Dates: start: 20060117
  2. CO CODOMAL [Concomitant]

REACTIONS (1)
  - COMPLETED SUICIDE [None]
